FAERS Safety Report 12002352 (Version 1)
Quarter: 2016Q1

REPORT INFORMATION
  Report Type: Report from Study
  Country: US (occurrence: US)
  Receive Date: 20160204
  Receipt Date: 20160204
  Transmission Date: 20160526
  Serious: No
  Sender: FDA-Public Use
  Company Number: US-ABBVIE-15K-163-1422894-00

PATIENT
  Sex: Male
  Weight: 69.46 kg

DRUGS (5)
  1. BENADRYL [Concomitant]
     Active Substance: DIPHENHYDRAMINE HYDROCHLORIDE
     Indication: HYPERSENSITIVITY
  2. HUMIRA [Suspect]
     Active Substance: ADALIMUMAB
     Indication: ANKYLOSING SPONDYLITIS
     Route: 058
     Dates: start: 201205, end: 20150615
  3. LORATADINE. [Concomitant]
     Active Substance: LORATADINE
     Indication: HYPERSENSITIVITY
  4. IBUPROFEN. [Concomitant]
     Active Substance: IBUPROFEN
     Indication: BACK PAIN
  5. CELEBREX [Concomitant]
     Active Substance: CELECOXIB
     Indication: BACK PAIN

REACTIONS (2)
  - Drug effect decreased [Not Recovered/Not Resolved]
  - Ankylosing spondylitis [Not Recovered/Not Resolved]

NARRATIVE: CASE EVENT DATE: 2015
